FAERS Safety Report 6823781-6 (Version None)
Quarter: 2010Q3

REPORT INFORMATION
  Report Type: 
  Country: None (occurrence: None)
  Receive Date: 20100708
  Receipt Date: 20060905
  Transmission Date: 20110219
  Serious: No
  Sender: FDA-Public Use
  Company Number: US-PFIZER INC-2006109717

PATIENT
  Sex: Female
  Weight: 52.16 kg

DRUGS (5)
  1. VARENICLINE [Suspect]
     Indication: EX-TOBACCO USER
     Dates: start: 20060801, end: 20060902
  2. PREMARIN [Concomitant]
  3. CALCIUM CARBONATE [Concomitant]
  4. FOSAMAX [Concomitant]
  5. NEXIUM [Concomitant]

REACTIONS (2)
  - NAUSEA [None]
  - SINUSITIS [None]
